FAERS Safety Report 20368726 (Version 1)
Quarter: 2022Q1

REPORT INFORMATION
  Report Type: Spontaneous
  Country: US (occurrence: US)
  Receive Date: 20220124
  Receipt Date: 20220124
  Transmission Date: 20220423
  Serious: Yes (Other)
  Sender: FDA-Public Use
  Company Number: US-SUN PHARMACEUTICAL INDUSTRIES LTD-2022R1-323645

PATIENT
  Age: 68 Year
  Sex: Male

DRUGS (2)
  1. TEMOZOLOMIDE [Suspect]
     Active Substance: TEMOZOLOMIDE
     Indication: Small cell lung cancer
     Dosage: 150 MILLIGRAM/SQ. METER, ON DAYS 1-5 OF A 28-DAY CYCLE
     Route: 048
  2. NIVOLUMAB [Suspect]
     Active Substance: NIVOLUMAB
     Indication: Small cell lung cancer
     Dosage: 480 MILLIGRAM, ON DAY 1 OF A 28-DAY CYCLE
     Route: 042

REACTIONS (6)
  - Therapy partial responder [Unknown]
  - Thrombocytopenia [Unknown]
  - Lymphopenia [Unknown]
  - Rosacea [Unknown]
  - Weight decreased [Recovered/Resolved]
  - Presyncope [Recovered/Resolved]
